FAERS Safety Report 8953310 (Version 5)
Quarter: 2013Q4

REPORT INFORMATION
  Report Type: Spontaneous
  Country: GB (occurrence: GB)
  Receive Date: 20121206
  Receipt Date: 20131009
  Transmission Date: 20140711
  Serious: Yes (Hospitalization, Other)
  Sender: FDA-Public Use
  Company Number: GB-JNJFOC-20040702618

PATIENT
  Age: 73 Year
  Sex: 0

DRUGS (7)
  1. IBUPROFEN [Suspect]
     Indication: ARTHRITIS
     Dosage: 400 MG NIGHTLY
     Route: 048
     Dates: start: 200406
  2. AMLODIPINE [Concomitant]
     Route: 048
  3. SIMVASTATIN [Concomitant]
     Route: 048
  4. RAMIPRIL [Concomitant]
     Route: 048
  5. BISOPROLOL [Concomitant]
     Dosage: FREQUENCY UNSPECIFIED
     Route: 048
  6. IRON [Concomitant]
     Route: 048
  7. FERROUS SULFATE [Concomitant]
     Route: 048

REACTIONS (5)
  - Condition aggravated [Recovered/Resolved]
  - Oesophagitis [Unknown]
  - Duodenitis [Unknown]
  - Upper gastrointestinal haemorrhage [Recovering/Resolving]
  - Anaemia [Recovering/Resolving]
